FAERS Safety Report 24885405 (Version 1)
Quarter: 2025Q1

REPORT INFORMATION
  Report Type: Spontaneous
  Country: US (occurrence: US)
  Receive Date: 20250124
  Receipt Date: 20250124
  Transmission Date: 20250409
  Serious: No
  Sender: PARI RESPIRATORY EQUIPMENT
  Company Number: US-PARI RESPIRATORY EQUIPMENT, INC.-2024PAR00069

PATIENT
  Sex: Male

DRUGS (9)
  1. KITABIS PAK [Suspect]
     Active Substance: TOBRAMYCIN
     Indication: Cystic fibrosis
     Dosage: 300 MG (5 ML), 2X/DAY FOR 28 DAYS
  2. KITABIS PAK [Suspect]
     Active Substance: TOBRAMYCIN
     Indication: Lung disorder
  3. ADVAIR HFA [Concomitant]
     Active Substance: FLUTICASONE PROPIONATE\SALMETEROL XINAFOATE
  4. BACTRIM DS [Concomitant]
     Active Substance: SULFAMETHOXAZOLE\TRIMETHOPRIM
  5. BETHKIS [Concomitant]
     Active Substance: TOBRAMYCIN
  6. KALYDECO [Concomitant]
     Active Substance: IVACAFTOR
  7. MONTELUKAST SODIUM [Concomitant]
     Active Substance: MONTELUKAST SODIUM
  8. MVW D5000 [Concomitant]
  9. TRIKAFTA [Concomitant]
     Active Substance: ELEXACAFTOR\IVACAFTOR\TEZACAFTOR

REACTIONS (2)
  - Loss of personal independence in daily activities [Unknown]
  - Product dose omission issue [Unknown]
